FAERS Safety Report 4420598-7 (Version None)
Quarter: 2004Q3

REPORT INFORMATION
  Report Type: 
  Country: None (occurrence: None)
  Receive Date: 20040809
  Receipt Date: 20040729
  Transmission Date: 20050211
  Serious: Yes (Other)
  Sender: FDA-Public Use
  Company Number: US-JNJFOC-20040707927

PATIENT
  Age: 54 Year
  Sex: Female

DRUGS (1)
  1. DOXIL [Suspect]
     Indication: BREAST CANCER
     Dosage: DOSE UNKNOWN, EVERY 4 WEEKS, X3 CYCLES
     Route: 042

REACTIONS (2)
  - PALMAR-PLANTAR ERYTHRODYSAESTHESIA SYNDROME [None]
  - WRIST FRACTURE [None]
